FAERS Safety Report 23571399 (Version 5)
Quarter: 2024Q2

REPORT INFORMATION
  Report Type: Report from Study
  Country: FR (occurrence: FR)
  Receive Date: 20240227
  Receipt Date: 20240509
  Transmission Date: 20240716
  Serious: Yes (Hospitalization, Other)
  Sender: FDA-Public Use
  Company Number: FR-002147023-NVSC2024FR031106

PATIENT
  Age: 3 Year
  Sex: Female
  Weight: 15 kg

DRUGS (24)
  1. SIROLIMUS [Suspect]
     Active Substance: SIROLIMUS
     Indication: Still^s disease
     Dosage: 0.1 MG/KG, 1X/DAY
     Route: 065
     Dates: start: 20230706, end: 20240124
  2. SIROLIMUS [Suspect]
     Active Substance: SIROLIMUS
     Dosage: 4 MG, 1X/DAY
     Dates: start: 20230711, end: 20231212
  3. SIROLIMUS [Suspect]
     Active Substance: SIROLIMUS
     Dosage: 4 MG, 1X/DAY
     Dates: start: 20240105, end: 20240126
  4. KINERET [Suspect]
     Active Substance: ANAKINRA
     Indication: Pneumonia pneumococcal
     Dosage: 50 MG, DAILY
     Dates: start: 20221201, end: 20230117
  5. KINERET [Suspect]
     Active Substance: ANAKINRA
     Indication: Juvenile idiopathic arthritis
     Dosage: 50 MG, DAILY
     Dates: start: 20230129, end: 20240207
  6. KINERET [Suspect]
     Active Substance: ANAKINRA
     Dosage: 2500 MG
  7. KINERET [Suspect]
     Active Substance: ANAKINRA
     Dosage: 50 MG, DAILY
     Dates: start: 20240129
  8. KINERET [Suspect]
     Active Substance: ANAKINRA
     Dosage: 50 MG 2 TO 3 DAYS
     Dates: start: 20240215, end: 20240319
  9. MAS-825 [Suspect]
     Active Substance: MAS-825
     Indication: Still^s disease
     Dosage: 10 MG/KG, EVERY 15 DAY
     Route: 065
     Dates: start: 20230510
  10. MAS-825 [Suspect]
     Active Substance: MAS-825
     Indication: Interleukin level increased
     Dosage: 170 MG Q2W
     Dates: start: 20230510
  11. MAS-825 [Suspect]
     Active Substance: MAS-825
     Indication: Haemophagocytic lymphohistiocytosis
     Dosage: 10 MG/KG, EVERY 15 DAY
     Route: 042
     Dates: start: 20240105
  12. ILARIS [Suspect]
     Active Substance: CANAKINUMAB
     Indication: Still^s disease
     Dosage: 150 MG Q2W
     Route: 065
     Dates: start: 20230204, end: 20230422
  13. ILARIS [Suspect]
     Active Substance: CANAKINUMAB
     Dosage: 150 MG (150 MG OR10 MG/KG EVERY OTHER WEEK), Q2W
     Route: 065
     Dates: start: 20230727
  14. ILARIS [Suspect]
     Active Substance: CANAKINUMAB
     Dosage: 150 MG, Q2W
     Dates: start: 20240105
  15. ILARIS [Suspect]
     Active Substance: CANAKINUMAB
     Dosage: 75 MG
     Route: 058
     Dates: start: 20240204, end: 20240204
  16. ILARIS [Suspect]
     Active Substance: CANAKINUMAB
     Dosage: UNK
     Dates: start: 20230304
  17. RUXOLITINIB [Concomitant]
     Active Substance: RUXOLITINIB
     Dosage: UNK
     Route: 065
     Dates: start: 20230118, end: 20230324
  18. CYCLOSPORINE [Concomitant]
     Active Substance: CYCLOSPORINE
     Dosage: UNK
     Route: 065
     Dates: start: 20230606, end: 20230712
  19. PREDNISONE [Concomitant]
     Active Substance: PREDNISONE
     Dosage: 22.5 MG, 1X/DAY
     Route: 065
  20. BARICITINIB [Concomitant]
     Active Substance: BARICITINIB
     Dosage: UNK
     Route: 065
  21. CLAFORAN [Concomitant]
     Active Substance: CEFOTAXIME SODIUM
     Dosage: 100 MG/KG, DAILY
     Dates: start: 20240115
  22. GENTAMICIN [Concomitant]
     Active Substance: GENTAMICIN
     Dosage: UNK
     Dates: start: 20240123
  23. ZITHROMAX [Concomitant]
     Active Substance: AZITHROMYCIN DIHYDRATE
     Dosage: UNK
     Dates: start: 20240115
  24. NEORAL [Concomitant]
     Active Substance: CYCLOSPORINE
     Dosage: UNK
     Dates: start: 20230607, end: 20230711

REACTIONS (15)
  - Pneumonia pneumococcal [Recovered/Resolved]
  - Interstitial lung disease [Unknown]
  - Pyrexia [Not Recovered/Not Resolved]
  - Immunosuppression [Unknown]
  - Oxygen saturation decreased [Unknown]
  - Empyema [Unknown]
  - Juvenile idiopathic arthritis [Unknown]
  - Vomiting [Unknown]
  - Pain [Unknown]
  - Acute respiratory failure [Unknown]
  - Haemophagocytic lymphohistiocytosis [Not Recovered/Not Resolved]
  - Disease recurrence [Unknown]
  - Eosinophilia [Unknown]
  - Lung disorder [Recovered/Resolved]
  - Pleural effusion [Unknown]

NARRATIVE: CASE EVENT DATE: 20240105
